FAERS Safety Report 6529056-7 (Version None)
Quarter: 2010Q1

REPORT INFORMATION
  Report Type: 
  Country: None (occurrence: None)
  Receive Date: 20100106
  Receipt Date: 20091228
  Transmission Date: 20100710
  Serious: Yes (Hospitalization)
  Sender: FDA-Public Use
  Company Number: FR-PFIZER INC-2009315082

PATIENT
  Age: 72 Year
  Sex: Female

DRUGS (12)
  1. TAHOR [Suspect]
     Route: 048
  2. LIPANTHYL [Interacting]
     Indication: DYSLIPIDAEMIA
     Route: 048
  3. LYRICA [Concomitant]
  4. INSULIN [Concomitant]
  5. DOLIPRANE [Concomitant]
  6. MOPRAL [Concomitant]
  7. DUSPATALIN ^DUPHAR^ [Concomitant]
  8. LERCANIDIPINE [Concomitant]
  9. FLUDEX [Concomitant]
  10. RENITEC [Concomitant]
  11. SKENAN [Concomitant]
  12. DAFLON [Concomitant]

REACTIONS (4)
  - HYPERKALAEMIA [None]
  - OVERDOSE [None]
  - RENAL FAILURE ACUTE [None]
  - RHABDOMYOLYSIS [None]
